FAERS Safety Report 9604240 (Version 9)
Quarter: 2014Q2

REPORT INFORMATION
  Report Type: Spontaneous
  Country: ZA (occurrence: ZA)
  Receive Date: 20131008
  Receipt Date: 20140418
  Transmission Date: 20141212
  Serious: Yes (Death, Hospitalization)
  Sender: FDA-Public Use
  Company Number: ZA-SA-2013SA098479

PATIENT
  Age: 10 Month
  Sex: Male

DRUGS (2)
  1. MYOZYME [Suspect]
     Indication: GLYCOGEN STORAGE DISEASE TYPE II
     Route: 042
     Dates: start: 20130424, end: 2014
  2. RITUXIMAB [Concomitant]
     Dosage: FOR 4 WEEKS
     Route: 042
     Dates: start: 20131118

REACTIONS (7)
  - Death [Fatal]
  - Respiratory failure [Not Recovered/Not Resolved]
  - Bronchiolitis [Not Recovered/Not Resolved]
  - Pyrexia [Not Recovered/Not Resolved]
  - Pulmonary hypertension [Not Recovered/Not Resolved]
  - Loss of consciousness [Recovered/Resolved]
  - Drug ineffective [Unknown]
